FAERS Safety Report 15143562 (Version 1)
Quarter: 2018Q3

REPORT INFORMATION
  Report Type: Spontaneous
  Country: IT (occurrence: IT)
  Receive Date: 20180713
  Receipt Date: 20180713
  Transmission Date: 20181010
  Serious: Yes (Life-Threatening)
  Sender: FDA-Public Use
  Company Number: IT-JNJFOC-20180706210

PATIENT
  Age: 47 Year
  Sex: Male

DRUGS (10)
  1. AKINETON [Suspect]
     Active Substance: BIPERIDEN HYDROCHLORIDE
     Indication: PSYCHOTIC DISORDER
     Route: 048
  2. ESILGAN [Suspect]
     Active Substance: ESTAZOLAM
     Indication: PSYCHOTIC DISORDER
     Route: 048
  3. RIVOTRIL [Suspect]
     Active Substance: CLONAZEPAM
     Indication: PSYCHOTIC DISORDER
     Route: 065
  4. NOZINAN [Suspect]
     Active Substance: LEVOMEPROMAZINE
     Indication: PSYCHOTIC DISORDER
     Route: 048
     Dates: start: 20100101, end: 20180620
  5. DELORAZEPAM [Suspect]
     Active Substance: DELORAZEPAM
     Indication: PSYCHOTIC DISORDER
     Route: 048
  6. TOPAMAX [Suspect]
     Active Substance: TOPIRAMATE
     Indication: PSYCHOTIC DISORDER
     Route: 048
     Dates: start: 20180610, end: 20180620
  7. IMPROMEN [Suspect]
     Active Substance: BROMPERIDOL
     Indication: PSYCHOTIC DISORDER
     Route: 048
     Dates: start: 20100101, end: 20180620
  8. CARBOLITHIUM [Suspect]
     Active Substance: LITHIUM CARBONATE
     Indication: PSYCHOTIC DISORDER
     Route: 048
     Dates: start: 20100101, end: 20180620
  9. DEPAKIN [Suspect]
     Active Substance: VALPROATE SODIUM
     Indication: PSYCHOTIC DISORDER
     Route: 048
  10. SYCREST [Suspect]
     Active Substance: ASENAPINE MALEATE
     Indication: PSYCHOTIC DISORDER
     Route: 048
     Dates: start: 20100101, end: 20180620

REACTIONS (7)
  - Myoglobin blood increased [Unknown]
  - Blood creatine phosphokinase increased [Unknown]
  - Confusional state [Unknown]
  - Off label use [Unknown]
  - Product use in unapproved indication [Unknown]
  - Neuroleptic malignant syndrome [Unknown]
  - Hyperthermia [Unknown]

NARRATIVE: CASE EVENT DATE: 20180610
